FAERS Safety Report 17189829 (Version 1)
Quarter: 2019Q4

REPORT INFORMATION
  Report Type: Spontaneous
  Country: CN (occurrence: CN)
  Receive Date: 20191223
  Receipt Date: 20191223
  Transmission Date: 20200122
  Serious: Yes (Hospitalization)
  Sender: FDA-Public Use
  Company Number: CN-ABBVIE-19K-035-3201914-00

PATIENT
  Age: 24 Year
  Sex: Female

DRUGS (3)
  1. CLONAZEPAM. [Interacting]
     Active Substance: CLONAZEPAM
     Route: 048
  2. SODIUM VALPROATE [Suspect]
     Active Substance: VALPROATE SODIUM
     Indication: EPILEPSY
     Route: 048
  3. CLONAZEPAM. [Interacting]
     Active Substance: CLONAZEPAM
     Indication: EPILEPSY
     Route: 048

REACTIONS (2)
  - Drug interaction [Recovered/Resolved]
  - Myopathy toxic [Recovered/Resolved]
